FAERS Safety Report 19595772 (Version 2)
Quarter: 2022Q1

REPORT INFORMATION
  Report Type: Spontaneous
  Country: US (occurrence: US)
  Receive Date: 20210722
  Receipt Date: 20220120
  Transmission Date: 20220423
  Serious: Yes (Other)
  Sender: FDA-Public Use
  Company Number: US-GILEAD-2021-0541247

PATIENT
  Age: 64 Year
  Sex: Male
  Weight: 79.37 kg

DRUGS (28)
  1. STRIBILD [Suspect]
     Active Substance: COBICISTAT\ELVITEGRAVIR\EMTRICITABINE\TENOFOVIR DISOPROXIL FUMARATE
     Indication: HIV infection
     Dosage: UNK
     Route: 048
     Dates: start: 2011
  2. STRIBILD [Suspect]
     Active Substance: COBICISTAT\ELVITEGRAVIR\EMTRICITABINE\TENOFOVIR DISOPROXIL FUMARATE
     Dosage: UNK
     Route: 048
     Dates: start: 20150922, end: 201701
  3. TRUVADA [Suspect]
     Active Substance: EMTRICITABINE\TENOFOVIR DISOPROXIL FUMARATE
     Indication: HIV infection
     Dosage: UNK
     Route: 048
     Dates: start: 2011
  4. TRUVADA [Suspect]
     Active Substance: EMTRICITABINE\TENOFOVIR DISOPROXIL FUMARATE
     Dosage: UNK
     Route: 048
     Dates: start: 201103, end: 201107
  5. TRUVADA [Suspect]
     Active Substance: EMTRICITABINE\TENOFOVIR DISOPROXIL FUMARATE
     Dosage: UNK
     Route: 048
     Dates: start: 20110804, end: 201509
  6. BIKTARVY [Concomitant]
     Active Substance: BICTEGRAVIR SODIUM\EMTRICITABINE\TENOFOVIR ALAFENAMIDE FUMARATE
  7. GENVOYA [Concomitant]
     Active Substance: COBICISTAT\ELVITEGRAVIR\EMTRICITABINE\TENOFOVIR ALAFENAMIDE FUMARATE
  8. NORVIR [Concomitant]
     Active Substance: RITONAVIR
  9. REYATAZ [Concomitant]
     Active Substance: ATAZANAVIR SULFATE
  10. AMITRIPTYLINE [Concomitant]
     Active Substance: AMITRIPTYLINE
  11. AMOXICILLIN [Concomitant]
     Active Substance: AMOXICILLIN
  12. BACLOFEN [Concomitant]
     Active Substance: BACLOFEN
  13. CYCLOBENZAPRINE [Concomitant]
     Active Substance: CYCLOBENZAPRINE
  14. DOXEPIN [Concomitant]
     Active Substance: DOXEPIN
  15. GABAPENTIN [Concomitant]
     Active Substance: GABAPENTIN
  16. IBUPROFEN [Concomitant]
     Active Substance: IBUPROFEN
  17. LYRICA [Concomitant]
     Active Substance: PREGABALIN
  18. MELOXICAM [Concomitant]
     Active Substance: MELOXICAM
  19. METHOCARBAMOL [Concomitant]
     Active Substance: METHOCARBAMOL
  20. NABUMETONE [Concomitant]
     Active Substance: NABUMETONE
  21. NAPROXEN [Concomitant]
     Active Substance: NAPROXEN
  22. NEOMYCIN [Concomitant]
     Active Substance: NEOMYCIN
  23. OXYCODONE [Concomitant]
     Active Substance: OXYCODONE
  24. PRAVASTATIN [Concomitant]
     Active Substance: PRAVASTATIN
  25. ROXICET [Concomitant]
     Active Substance: ACETAMINOPHEN\OXYCODONE HYDROCHLORIDE
  26. SULFAMETHOXAZOLE [Concomitant]
     Active Substance: SULFAMETHOXAZOLE
  27. TRAMADOL [Concomitant]
     Active Substance: TRAMADOL
  28. VITAMIN D NOS [Concomitant]
     Active Substance: VITAMIN D NOS

REACTIONS (6)
  - Chronic kidney disease [Not Recovered/Not Resolved]
  - Pain [Not Recovered/Not Resolved]
  - Emotional distress [Not Recovered/Not Resolved]
  - Anxiety [Not Recovered/Not Resolved]
  - Anhedonia [Not Recovered/Not Resolved]
  - Malaise [Unknown]

NARRATIVE: CASE EVENT DATE: 20161216
